FAERS Safety Report 6544635-9 (Version None)
Quarter: 2010Q1

REPORT INFORMATION
  Report Type: 
  Country: None (occurrence: None)
  Receive Date: 20100121
  Receipt Date: 20100118
  Transmission Date: 20100710
  Serious: Yes (Death, Hospitalization)
  Sender: FDA-Public Use
  Company Number: PHEH2010US00998

PATIENT
  Sex: Female

DRUGS (2)
  1. RECLAST [Suspect]
     Dosage: UNK, ONCE/SINGLE USE
     Dates: start: 20080101, end: 20080101
  2. RECLAST [Suspect]
     Dosage: UNK, ONCE/SINGLE USE
     Dates: start: 20091211

REACTIONS (11)
  - ASTHENIA [None]
  - CARDIAC FAILURE [None]
  - COAGULOPATHY [None]
  - DYSPNOEA [None]
  - FLUID INTAKE REDUCED [None]
  - HEPATIC FAILURE [None]
  - HYPOPHAGIA [None]
  - MALAISE [None]
  - MYOCARDIAL INFARCTION [None]
  - RENAL FAILURE [None]
  - TRAUMATIC LIVER INJURY [None]
